FAERS Safety Report 25736944 (Version 2)
Quarter: 2025Q3

REPORT INFORMATION
  Report Type: Report from Study
  Country: US (occurrence: US)
  Receive Date: 20250828
  Receipt Date: 20250829
  Transmission Date: 20251021
  Serious: Yes (Death)
  Sender: PFIZER
  Company Number: US-PFIZER INC-202500104194

PATIENT
  Age: 54 Year
  Sex: Female

DRUGS (25)
  1. BRAFTOVI [Suspect]
     Active Substance: ENCORAFENIB
     Indication: Malignant melanoma
     Dosage: 450 MG, 1X/DAY
     Route: 048
     Dates: start: 20250506
  2. MEKTOVI [Suspect]
     Active Substance: BINIMETINIB
     Indication: Malignant melanoma
     Dosage: 45 MG, 2X/DAY
     Route: 048
     Dates: start: 20250506
  3. BACLOFEN [Concomitant]
     Active Substance: BACLOFEN
  4. CALTRATE 600+D3 PLUS MINERALS [BORON;CALCIUM;COLECALCIFEROL;COPPER;MAG [Concomitant]
  5. FUROSEMIDE [Concomitant]
     Active Substance: FUROSEMIDE
  6. ACETAMINOPHEN\HYDROCODONE [Concomitant]
     Active Substance: ACETAMINOPHEN\HYDROCODONE
  7. HYDROCORTISONE [Concomitant]
     Active Substance: HYDROCORTISONE
  8. HYDROXYZINE [Concomitant]
     Active Substance: HYDROXYZINE HYDROCHLORIDE
  9. IMODIUM A-D [Concomitant]
     Active Substance: LOPERAMIDE HYDROCHLORIDE
  10. LEVOTHYROXINE [Concomitant]
     Active Substance: LEVOTHYROXINE
  11. MAGNESIUM OXIDE [Concomitant]
     Active Substance: MAGNESIUM OXIDE
  12. OMEGA-3 FATTY ACIDS [Concomitant]
     Active Substance: OMEGA-3 FATTY ACIDS
  13. OMEPRAZOLE [Concomitant]
     Active Substance: OMEPRAZOLE
  14. PROVENTIL HFA [Concomitant]
     Active Substance: ALBUTEROL SULFATE
  15. ROPINIROLE [Concomitant]
     Active Substance: ROPINIROLE
  16. SIMVASTATIN [Concomitant]
     Active Substance: SIMVASTATIN
  17. TRAZODONE [Concomitant]
     Active Substance: TRAZODONE HYDROCHLORIDE
  18. VARENICLINE [Concomitant]
     Active Substance: VARENICLINE
  19. ESTRADIOL [Concomitant]
     Active Substance: ESTRADIOL
  20. ADVAIR HFA [Concomitant]
     Active Substance: FLUTICASONE PROPIONATE\SALMETEROL XINAFOATE
  21. HYDROXYZINE HYDROCHLORIDE [Concomitant]
     Active Substance: HYDROXYZINE HYDROCHLORIDE
  22. LEVOTHYROXINE SODIUM [Concomitant]
     Active Substance: LEVOTHYROXINE SODIUM
  23. ROPINIROLE HYDROCHLORIDE [Concomitant]
     Active Substance: ROPINIROLE HYDROCHLORIDE
  24. TRAZODONE HCL [Concomitant]
     Active Substance: TRAZODONE HYDROCHLORIDE
  25. VARENICLINE TARTRATE [Concomitant]
     Active Substance: VARENICLINE TARTRATE

REACTIONS (10)
  - Death [Fatal]
  - Visual impairment [Recovering/Resolving]
  - Diarrhoea [Recovering/Resolving]
  - Alopecia [Not Recovered/Not Resolved]
  - Nausea [Not Recovered/Not Resolved]
  - Feeling of body temperature change [Not Recovered/Not Resolved]
  - Malaise [Not Recovered/Not Resolved]
  - Haemorrhoids [Not Recovered/Not Resolved]
  - Polyp [Not Recovered/Not Resolved]
  - Blood urine present [Not Recovered/Not Resolved]

NARRATIVE: CASE EVENT DATE: 20250826
